FAERS Safety Report 21836419 (Version 1)
Quarter: 2023Q1

REPORT INFORMATION
  Report Type: Spontaneous
  Country: US (occurrence: US)
  Receive Date: 20230109
  Receipt Date: 20230109
  Transmission Date: 20230418
  Serious: No
  Sender: FDA-Public Use
  Company Number: US-TERSERA THERAPEUTICS LLC-2022TRS004740

PATIENT

DRUGS (3)
  1. PRIALT [Suspect]
     Active Substance: ZICONOTIDE ACETATE
     Indication: Product used for unknown indication
     Dosage: UNK
     Route: 037
  2. MORPHINE [Suspect]
     Active Substance: MORPHINE
     Indication: Product used for unknown indication
     Dosage: 1.04561 MG/QD (CONCENTRATION: 5MG)
     Route: 037
  3. MORPHINE [Suspect]
     Active Substance: MORPHINE
     Dosage: 0.7316 MG, QD (CONCENTRATION: 2.5MG)
     Route: 037

REACTIONS (4)
  - Dizziness [Not Recovered/Not Resolved]
  - Nausea [Not Recovered/Not Resolved]
  - Headache [Not Recovered/Not Resolved]
  - Off label use [Unknown]

NARRATIVE: CASE EVENT DATE: 20221005
